FAERS Safety Report 7562906-4 (Version None)
Quarter: 2011Q2

REPORT INFORMATION
  Report Type: 
  Country: None (occurrence: None)
  Receive Date: 20110622
  Receipt Date: 20110607
  Transmission Date: 20111010
  Serious: Yes (Life-Threatening, Hospitalization)
  Sender: FDA-Public Use
  Company Number: US-ROCHE-783201

PATIENT

DRUGS (3)
  1. CISPLATIN [Suspect]
     Indication: NON-SMALL CELL LUNG CANCER
     Dosage: ON DAY 1.
     Route: 042
     Dates: start: 20100601, end: 20100723
  2. PEMETREXED [Suspect]
     Indication: NON-SMALL CELL LUNG CANCER
     Dosage: ON DAY 1.
     Route: 042
     Dates: start: 20100601, end: 20100723
  3. BEVACIZUMAB [Suspect]
     Indication: NON-SMALL CELL LUNG CANCER
     Dosage: OVER 30-90 MIN ON DAY 1. LAST DOSE PRIOR TOSAE: 22 JUN 10.
     Route: 042
     Dates: start: 20100601, end: 20100723

REACTIONS (9)
  - PYREXIA [None]
  - SPEECH DISORDER [None]
  - VOMITING [None]
  - NAUSEA [None]
  - PNEUMONITIS [None]
  - PLEURAL EFFUSION [None]
  - LETHARGY [None]
  - HYPERTENSION [None]
  - HYPONATRAEMIA [None]
